FAERS Safety Report 6904830-3 (Version None)
Quarter: 2010Q3

REPORT INFORMATION
  Report Type: 
  Country: None (occurrence: None)
  Receive Date: 20100804
  Receipt Date: 20090718
  Transmission Date: 20110219
  Serious: No
  Sender: FDA-Public Use
  Company Number: US-PFIZER INC-2009215372

PATIENT
  Sex: Female
  Weight: 89.796 kg

DRUGS (11)
  1. LYRICA [Suspect]
     Indication: NEUROPATHY PERIPHERAL
     Dosage: 75 MG, 1X/DAY
     Dates: start: 20080101, end: 20090501
  2. SITAGLIPTIN [Concomitant]
  3. AVANDAMET [Concomitant]
  4. PLAVIX [Concomitant]
  5. TRICOR [Concomitant]
  6. ACETYLSALICYLIC ACID [Concomitant]
  7. ENALAPRIL [Concomitant]
  8. GLYBURIDE [Concomitant]
  9. SIMVASTATIN [Concomitant]
  10. NITROFURANTOIN [Concomitant]
  11. TRAMADOL [Concomitant]

REACTIONS (2)
  - PAIN IN EXTREMITY [None]
  - VISION BLURRED [None]
